FAERS Safety Report 6176510-6 (Version None)
Quarter: 2009Q2

REPORT INFORMATION
  Report Type: 
  Country: None (occurrence: None)
  Receive Date: 20090501
  Receipt Date: 20090427
  Transmission Date: 20091009
  Serious: Yes (Other)
  Sender: FDA-Public Use
  Company Number: PHEH2009US04176

PATIENT
  Sex: Male

DRUGS (3)
  1. TEKTURNA [Suspect]
     Dosage: 150 UNK, UNK
  2. ACE INHIBITOR NOS [Suspect]
  3. DIURETICS [Suspect]

REACTIONS (1)
  - CARDIAC FAILURE CONGESTIVE [None]
